FAERS Safety Report 19011361 (Version 1)
Quarter: 2021Q1

REPORT INFORMATION
  Report Type: Spontaneous
  Country: JP (occurrence: JP)
  Receive Date: 20210315
  Receipt Date: 20210315
  Transmission Date: 20210420
  Serious: Yes (Hospitalization)
  Sender: FDA-Public Use
  Company Number: JP-DSJP-DSJ-2021-107158AA

PATIENT
  Age: 54 Year
  Sex: Female

DRUGS (4)
  1. AMLODIPINE                         /00972402/ [Suspect]
     Active Substance: AMLODIPINE BESYLATE
     Dosage: 345MG/DAY
     Route: 048
  2. BROTIZOLAM [Suspect]
     Active Substance: BROTIZOLAM
     Dosage: 0.75MG/DAY
     Route: 048
  3. OLMETEC OD [Suspect]
     Active Substance: OLMESARTAN MEDOXOMIL
     Dosage: 340MG/DAY
     Route: 048
  4. ETIZOLAM ^FUJINAGA^ [Suspect]
     Active Substance: ETIZOLAM
     Dosage: 4MG/DAY
     Route: 048

REACTIONS (3)
  - Overdose [Unknown]
  - Hypotension [Recovered/Resolved]
  - Pneumonia [Recovering/Resolving]
